FAERS Safety Report 8230214-4 (Version None)
Quarter: 2012Q1

REPORT INFORMATION
  Report Type: 
  Country: None (occurrence: None)
  Receive Date: 20120321
  Receipt Date: 20120321
  Transmission Date: 20120608
  Serious: Yes (Hospitalization, Other)
  Sender: FDA-Public Use
  Company Number: None

PATIENT
  Age: 67 Year
  Sex: Male
  Weight: 101.2 kg

DRUGS (7)
  1. ZYRTEC [Concomitant]
  2. LOVENOX [Concomitant]
  3. LISINOPRIL [Concomitant]
  4. SUTENT [Suspect]
     Indication: RENAL CELL CARCINOMA
     Dosage: 50 MG (50 MG, 1 IN 1 D), PER ORAL
     Route: 048
     Dates: start: 20110915, end: 20111013
  5. COUMADIN [Concomitant]
  6. VITAMIN D [Concomitant]
  7. HYDRALAZINE HCL [Concomitant]

REACTIONS (4)
  - BRAIN HERNIATION [None]
  - DEEP VEIN THROMBOSIS [None]
  - ACUTE SINUSITIS [None]
  - SUBDURAL HAEMATOMA [None]
